FAERS Safety Report 4911574-6 (Version None)
Quarter: 2006Q1

REPORT INFORMATION
  Report Type: 
  Country: None (occurrence: None)
  Receive Date: 20060213
  Receipt Date: 20060208
  Transmission Date: 20060701
  Serious: Yes (Death)
  Sender: FDA-Public Use
  Company Number: PERC20060006

PATIENT
  Age: 33 Year
  Sex: Male

DRUGS (3)
  1. PERCOCET [Suspect]
     Indication: BACK PAIN
     Dosage: PO
     Route: 048
     Dates: start: 20040101, end: 20041201
  2. ABILIFY [Suspect]
     Indication: BIPOLAR DISORDER
     Dosage: 15 MG PO
     Route: 048
  3. REMERON [Suspect]
     Indication: BIPOLAR DISORDER
     Dosage: 30 MG GHS PO
     Route: 048

REACTIONS (3)
  - BACK PAIN [None]
  - DRUG INTERACTION [None]
  - OVERDOSE [None]
